FAERS Safety Report 14009208 (Version 1)
Quarter: 2017Q3

REPORT INFORMATION
  Report Type: Spontaneous
  Country: US (occurrence: US)
  Receive Date: 20170925
  Receipt Date: 20170925
  Transmission Date: 20171128
  Serious: Yes (Death)
  Sender: FDA-Public Use
  Company Number: US-CELGENEUS-USA-20170907164

PATIENT
  Sex: Female

DRUGS (2)
  1. POMALYST [Suspect]
     Active Substance: POMALIDOMIDE
     Indication: ACUTE MYELOID LEUKAEMIA
     Dosage: 2 MILLIGRAM
     Route: 048
     Dates: start: 201607
  2. POMALYST [Suspect]
     Active Substance: POMALIDOMIDE
     Dosage: 2 MILLIGRAM
     Route: 048
     Dates: start: 20170704

REACTIONS (1)
  - Death [Fatal]

NARRATIVE: CASE EVENT DATE: 2017
